FAERS Safety Report 10478516 (Version 4)
Quarter: 2015Q1

REPORT INFORMATION
  Report Type: Spontaneous
  Country: GB (occurrence: None)
  Receive Date: 20140924
  Receipt Date: 20150212
  Transmission Date: 20150720
  Serious: Yes (Hospitalization, Other)
  Sender: FDA-Public Use
  Company Number: ADR-2014-01716

PATIENT
  Sex: Male

DRUGS (1)
  1. COMPOUNDED BACLOFEN INTRATHECAL [Suspect]
     Active Substance: BACLOFEN

REACTIONS (12)
  - Twiddler^s syndrome [None]
  - Drug withdrawal syndrome [None]
  - Rebound effect [None]
  - Device dislocation [None]
  - Drug dose omission [None]
  - Implant site extravasation [None]
  - Cerebrospinal fluid leakage [None]
  - Implant site swelling [None]
  - Underdose [None]
  - Device breakage [None]
  - Device inversion [None]
  - Muscle spasticity [None]
